FAERS Safety Report 10551150 (Version 1)
Quarter: 2014Q4

REPORT INFORMATION
  Report Type: Spontaneous
  Country: US (occurrence: None)
  Receive Date: 20141028
  Receipt Date: 20141028
  Transmission Date: 20150529
  Serious: Yes (Life-Threatening, Other)
  Sender: FDA-Public Use
  Company Number: None

PATIENT
  Age: 51 Year
  Sex: Male
  Weight: 108.86 kg

DRUGS (2)
  1. DULOXETINE 60 MG [Suspect]
     Active Substance: DULOXETINE
     Indication: NEUROPATHY PERIPHERAL
     Dosage: 2 TO 3 WEEKS??1  60MG ONCE / DAY ONCE DAILY TAKEN BY MOUTH?
     Route: 048
  2. DULOXETINE 60 MG [Suspect]
     Active Substance: DULOXETINE
     Dosage: 2 TO 3 WEEKS??1  60MG ONCE / DAY ONCE DAILY TAKEN BY MOUTH?
     Route: 048

REACTIONS (7)
  - Apathy [None]
  - Drug ineffective [None]
  - Depression [None]
  - Back pain [None]
  - Malaise [None]
  - Headache [None]
  - Product substitution issue [None]

NARRATIVE: CASE EVENT DATE: 20141027
